FAERS Safety Report 22270650 (Version 1)
Quarter: 2023Q2

REPORT INFORMATION
  Report Type: Spontaneous
  Country: CO (occurrence: CO)
  Receive Date: 20230501
  Receipt Date: 20230501
  Transmission Date: 20230721
  Serious: Yes (Other)
  Sender: FDA-Public Use
  Company Number: CO-PFIZER INC-PV202300076860

PATIENT
  Age: 47 Year
  Sex: Female

DRUGS (1)
  1. GENOTROPIN [Suspect]
     Active Substance: SOMATROPIN
     Dosage: 0.4 MG
     Route: 058
     Dates: start: 2012

REACTIONS (4)
  - Sinusitis bacterial [Unknown]
  - Meningitis [Unknown]
  - Optic nerve injury [Unknown]
  - Blindness [Unknown]
